FAERS Safety Report 25258782 (Version 1)
Quarter: 2025Q2

REPORT INFORMATION
  Report Type: Report from Study
  Country: EG (occurrence: EG)
  Receive Date: 20250501
  Receipt Date: 20250501
  Transmission Date: 20250716
  Serious: Yes (Death)
  Sender: ABBVIE
  Company Number: EG-ABBVIE-6259680

PATIENT
  Age: 71 Year
  Sex: Female

DRUGS (3)
  1. HUMIRA [Suspect]
     Active Substance: ADALIMUMAB
     Indication: Rheumatoid arthritis
     Dosage: 1 SYRINGE. FORM STRENGTH: 40 MILLIGRAM
     Route: 058
  2. HUMIRA [Suspect]
     Active Substance: ADALIMUMAB
     Dosage: 1 SYRINGE. FORM STRENGTH: 40 MILLIGRAM. STOP DATE TEXT: JUNE-JULY 2023
     Route: 058
     Dates: start: 2019
  3. VITAMIN B12 [Concomitant]
     Active Substance: CYANOCOBALAMIN
     Indication: Nervous system disorder

REACTIONS (7)
  - Diabetes mellitus [Fatal]
  - Hepatic enzyme abnormal [Fatal]
  - Nervous system disorder [Fatal]
  - Renal disorder [Fatal]
  - Blood creatinine increased [Fatal]
  - Blood cholesterol abnormal [Unknown]
  - Bone disorder [Unknown]
